FAERS Safety Report 5858960-8 (Version None)
Quarter: 2008Q3

REPORT INFORMATION
  Report Type: 
  Country: None (occurrence: None)
  Receive Date: 20080826
  Receipt Date: 20080818
  Transmission Date: 20090109
  Serious: Yes (Death, Hospitalization, Other)
  Sender: FDA-Public Use
  Company Number: US-JNJFOC-20080803837

PATIENT
  Age: 61 Year
  Sex: Female

DRUGS (4)
  1. REMICADE [Suspect]
     Route: 040
  2. REMICADE [Suspect]
     Indication: RHEUMATOID ARTHRITIS
     Route: 040
  3. METHOTREXATE [Concomitant]
     Indication: RHEUMATOID ARTHRITIS
  4. STEROID [Concomitant]
     Indication: RHEUMATOID ARTHRITIS

REACTIONS (4)
  - DEATH [None]
  - LEGIONELLA INFECTION [None]
  - PNEUMONIA [None]
  - RESPIRATORY DISTRESS [None]
